FAERS Safety Report 19420485 (Version 1)
Quarter: 2021Q2

REPORT INFORMATION
  Report Type: Spontaneous
  Country: IE (occurrence: IE)
  Receive Date: 20210616
  Receipt Date: 20210616
  Transmission Date: 20210717
  Serious: Yes (Other)
  Sender: FDA-Public Use
  Company Number: IE-LUPIN PHARMACEUTICALS INC.-2021-09474

PATIENT
  Age: 34 Year
  Sex: Female

DRUGS (4)
  1. BILASTINE [Suspect]
     Active Substance: BILASTINE
     Indication: HERPES GESTATIONIS
     Dosage: UNK
     Route: 065
  2. IMMUNE GLOBULIN (IMMUNOGLOBULINS NOS) [Suspect]
     Active Substance: IMMUNE GLOBULIN NOS
     Indication: HERPES GESTATIONIS
     Dosage: UNK
     Route: 042
  3. CICLOSPORIN [Suspect]
     Active Substance: CYCLOSPORINE
     Indication: HERPES GESTATIONIS
     Dosage: 3 MILLIGRAM/KILOGRAM
     Route: 065
  4. CLOBETASOL [Suspect]
     Active Substance: CLOBETASOL
     Indication: HERPES GESTATIONIS
     Dosage: UNK, OINTMENT
     Route: 061

REACTIONS (3)
  - Maternal exposure during pregnancy [Unknown]
  - Drug ineffective [Unknown]
  - Normal newborn [Unknown]
